FAERS Safety Report 5862049-1 (Version None)
Quarter: 2008Q3

REPORT INFORMATION
  Report Type: 
  Country: None (occurrence: None)
  Receive Date: 20080827
  Receipt Date: 20080827
  Transmission Date: 20090109
  Serious: Yes (Life-Threatening)
  Sender: FDA-Public Use
  Company Number: None

PATIENT
  Age: 43 Year
  Sex: Female
  Weight: 79.3795 kg

DRUGS (6)
  1. BUPROPION HCL [Suspect]
     Indication: DEPRESSION
     Dosage: 150MG DAILY PO
     Route: 048
     Dates: start: 20080809
  2. PAXIL CR [Suspect]
  3. XANAX XR [Suspect]
  4. L-CARNITINE [Concomitant]
  5. ZONISOMIDE [Concomitant]
  6. WELLBUTRIN XL [Suspect]

REACTIONS (2)
  - DEPRESSION [None]
  - SUICIDAL IDEATION [None]
